FAERS Safety Report 8462604 (Version 5)
Quarter: 2013Q2

REPORT INFORMATION
  Report Type: Report from Study
  Country: DE (occurrence: DE)
  Receive Date: 20120316
  Receipt Date: 20130624
  Transmission Date: 20140414
  Serious: Yes (Hospitalization)
  Sender: FDA-Public Use
  Company Number: DE-UCBSA-042498

PATIENT
  Sex: Female
  Weight: 74 kg

DRUGS (25)
  1. NEUPRO [Suspect]
     Indication: RESTLESS LEGS SYNDROME
     Route: 062
     Dates: start: 20120217
  2. NEUPRO [Suspect]
     Indication: RESTLESS LEGS SYNDROME
     Dosage: 1MG/24 HOUR,
     Route: 062
     Dates: start: 20110820, end: 20120217
  3. NEUPRO [Suspect]
     Indication: RESTLESS LEGS SYNDROME
     Dosage: 1MG/24 HOUR
     Route: 062
     Dates: start: 20110808, end: 20110820
  4. NEUPRO [Suspect]
     Indication: RESTLESS LEGS SYNDROME
     Dosage: 1 MG/24 HOUR
     Route: 062
     Dates: start: 20110729, end: 20110808
  5. NEUPRO [Suspect]
     Indication: RESTLESS LEGS SYNDROME
     Dosage: 2 MG/24 HOUR
     Route: 062
     Dates: start: 20110217, end: 2011
  6. BISOPROLOL [Concomitant]
     Indication: HYPERTENSION
     Dosage: DAILY DOSE: 2.5 MG, SINGLE DOSE: 5 MG, NUMBER OF SINGLE DOSES (PER DAY): 0.5
     Route: 048
  7. TORASEMID [Concomitant]
     Indication: HYPERTENSION
     Dosage: DAILY DOSE: 10 MG, SINGLE DOSE: 20 MG, NUMBER OF SINGLE DOSES (PER DAY): 0.5
     Route: 048
  8. BLOPRESS [Concomitant]
     Indication: HYPERTENSION
     Route: 048
  9. CITALOPRAM [Concomitant]
     Indication: DEPRESSION
     Route: 048
  10. PRESOMEN [Concomitant]
     Indication: OSTEOPOROSIS
     Route: 048
  11. RESTEX [Concomitant]
     Indication: RESTLESS LEGS SYNDROME
     Dosage: 100/25 MG DAILY
     Route: 048
     Dates: start: 20110729, end: 20110808
  12. RESTEX RETARD [Concomitant]
     Indication: RESTLESS LEGS SYNDROME
     Dosage: 100/25 MG DAILY
     Route: 048
  13. CIPROBAY [Concomitant]
     Indication: MICTURITION URGENCY
     Dosage: UNKNOWN DOSE
     Route: 048
     Dates: start: 20120301, end: 20120315
  14. TOVIAZ [Concomitant]
     Indication: MICTURITION DISORDER
     Route: 048
     Dates: start: 20120301
  15. TOVIAZ [Concomitant]
     Indication: MICTURITION URGENCY
     Route: 048
     Dates: start: 20120301
  16. TOVIAZ [Concomitant]
     Indication: MICTURITION DISORDER
     Route: 048
     Dates: start: 20120415
  17. TOVIAZ [Concomitant]
     Indication: MICTURITION URGENCY
     Route: 048
     Dates: start: 20120415
  18. YENTREVE [Concomitant]
     Indication: MICTURITION URGENCY
     Route: 048
     Dates: start: 20120401
  19. FURADANTIN [Concomitant]
     Indication: MICTURITION URGENCY
     Dosage: 1 TABLET
     Route: 048
     Dates: start: 20120401
  20. FURADANTIN [Concomitant]
     Indication: URINARY TRACT INFECTION
     Dosage: 1 TABLET
     Route: 048
     Dates: start: 20120401
  21. FURADANTIN [Concomitant]
     Indication: PROPHYLAXIS
     Dosage: 1 TABLET
     Route: 048
     Dates: start: 20120401
  22. NITROFURANTOIN [Concomitant]
     Indication: PROPHYLAXIS
     Dates: start: 20120412, end: 20120425
  23. NITROFURANTOIN [Concomitant]
     Indication: URINARY TRACT INFECTION
     Dates: start: 20120412, end: 20120425
  24. NITROFURANTOIN [Concomitant]
     Indication: PROPHYLAXIS
     Dates: start: 20120425
  25. NITROFURANTOIN [Concomitant]
     Indication: URINARY TRACT INFECTION
     Dates: start: 20120425

REACTIONS (6)
  - Micturition urgency [Recovered/Resolved]
  - Urinary tract infection [Recovered/Resolved]
  - Sinus tachycardia [Recovered/Resolved]
  - Dizziness [Recovered/Resolved]
  - Gait disturbance [Recovered/Resolved]
  - Bronchitis [Recovered/Resolved]
